FAERS Safety Report 8388486-1 (Version None)
Quarter: 2012Q2

REPORT INFORMATION
  Report Type: 
  Country: None (occurrence: None)
  Receive Date: 20120525
  Receipt Date: 20120518
  Transmission Date: 20120825
  Serious: Yes (Other)
  Sender: FDA-Public Use
  Company Number: VE-ROCHE-1071808

PATIENT
  Sex: Female

DRUGS (3)
  1. CODIPRONT [Concomitant]
     Indication: COUGH
     Dosage: 30/10 MG
     Route: 048
  2. XOLAIR [Suspect]
     Indication: RHINITIS ALLERGIC
  3. XOLAIR [Suspect]
     Indication: ASTHMA
     Dosage: 300 MG AND 15 DAYS LATER 150 MG
     Route: 058
     Dates: start: 20111201

REACTIONS (3)
  - DYSPNOEA [None]
  - PNEUMONIA CHLAMYDIAL [None]
  - PNEUMONIA MYCOPLASMAL [None]
